FAERS Safety Report 9082319 (Version 1)
Quarter: 2013Q1

REPORT INFORMATION
  Report Type: Report from Study
  Country: US (occurrence: US)
  Receive Date: 20130130
  Receipt Date: 20130130
  Transmission Date: 20140127
  Serious: No
  Sender: FDA-Public Use
  Company Number: US-ABBOTT-12P-163-0964886-00

PATIENT
  Age: 44 Year
  Sex: Male

DRUGS (1)
  1. HUMIRA 40 MG/0.8 ML PEN [Suspect]
     Indication: CROHN^S DISEASE
     Dates: start: 20120604

REACTIONS (9)
  - Unevaluable event [Unknown]
  - Upper-airway cough syndrome [Unknown]
  - Cough [Unknown]
  - Rhinorrhoea [Unknown]
  - Sneezing [Unknown]
  - Injection site pain [Recovering/Resolving]
  - Injection site bruising [Recovering/Resolving]
  - Pharyngeal erythema [Recovered/Resolved]
  - Oropharyngeal pain [Recovered/Resolved]
